FAERS Safety Report 19814189 (Version 1)
Quarter: 2021Q3

REPORT INFORMATION
  Report Type: Spontaneous
  Country: US (occurrence: US)
  Receive Date: 20210909
  Receipt Date: 20210909
  Transmission Date: 20211014
  Serious: Yes (Hospitalization)
  Sender: FDA-Public Use
  Company Number: None

PATIENT
  Sex: Female

DRUGS (2)
  1. ATAZANAVIR 200MG AMNEAL PHARMACEUTICALS [Suspect]
     Active Substance: ATAZANAVIR
     Indication: HIV INFECTION
     Route: 048
     Dates: start: 20201003
  2. ABACAVIR/LAMIVUDINE [Concomitant]
     Active Substance: ABACAVIR\LAMIVUDINE

REACTIONS (1)
  - Dehydration [None]
